FAERS Safety Report 15531639 (Version 2)
Quarter: 2018Q4

REPORT INFORMATION
  Report Type: Spontaneous
  Country: US (occurrence: US)
  Receive Date: 20181019
  Receipt Date: 20181115
  Transmission Date: 20190205
  Serious: No
  Sender: FDA-Public Use
  Company Number: US-PFIZER INC-2018415907

PATIENT
  Age: 58 Year
  Sex: Female

DRUGS (1)
  1. ESTRING [Suspect]
     Active Substance: ESTRADIOL
     Dosage: UNK [EVERY TWO MONTHS]

REACTIONS (3)
  - Product use issue [Unknown]
  - Urinary tract infection [Unknown]
  - Pain [Unknown]
